FAERS Safety Report 8176778-0 (Version None)
Quarter: 2012Q1

REPORT INFORMATION
  Report Type: 
  Country: None (occurrence: None)
  Receive Date: 20120301
  Receipt Date: 20120224
  Transmission Date: 20120608
  Serious: Yes (Hospitalization)
  Sender: FDA-Public Use
  Company Number: US-AMGEN-USASP2011036339

PATIENT
  Age: 58 Year
  Sex: Male
  Weight: 90.703 kg

DRUGS (5)
  1. HUMIRA [Concomitant]
     Dosage: UNK
     Dates: end: 20090101
  2. ENBREL [Suspect]
     Indication: ANKYLOSING SPONDYLITIS
     Dosage: 50 MG, QWK
     Route: 058
     Dates: start: 20100608, end: 20110404
  3. VICODIN [Concomitant]
  4. NEURONTIN [Concomitant]
  5. PEPCID [Concomitant]

REACTIONS (1)
  - PROSTATE CANCER [None]
